FAERS Safety Report 18377278 (Version 7)
Quarter: 2022Q3

REPORT INFORMATION
  Report Type: Spontaneous
  Country: US (occurrence: US)
  Receive Date: 20201013
  Receipt Date: 20220818
  Transmission Date: 20221026
  Serious: No
  Sender: FDA-Public Use
  Company Number: US-BIOGEN-2020BI00891087

PATIENT
  Age: 53 Year
  Sex: Female

DRUGS (2)
  1. TYSABRI [Suspect]
     Active Substance: NATALIZUMAB
     Indication: Multiple sclerosis
     Route: 050
     Dates: start: 20110302
  2. TYSABRI [Suspect]
     Active Substance: NATALIZUMAB
     Route: 050
     Dates: start: 20200909

REACTIONS (13)
  - Inappropriate schedule of product administration [Unknown]
  - Prescribed underdose [Unknown]
  - Product dose omission issue [Unknown]
  - Foot fracture [Unknown]
  - Memory impairment [Unknown]
  - Visual impairment [Unknown]
  - Ankle fracture [Unknown]
  - Multiple sclerosis relapse [Unknown]
  - Illness [Unknown]
  - Multiple sclerosis [Unknown]
  - Stress [Unknown]
  - Discomfort [Unknown]
  - Hyperaesthesia [Unknown]

NARRATIVE: CASE EVENT DATE: 20200909
